FAERS Safety Report 16982905 (Version 1)
Quarter: 2019Q4

REPORT INFORMATION
  Report Type: Spontaneous
  Country: US (occurrence: US)
  Receive Date: 20191101
  Receipt Date: 20191101
  Transmission Date: 20200122
  Serious: No
  Sender: FDA-Public Use
  Company Number: US-ASTRAZENECA-2019SF43075

PATIENT
  Sex: Male
  Weight: 63.5 kg

DRUGS (1)
  1. KOMBIGLYZE XR [Suspect]
     Active Substance: METFORMIN HYDROCHLORIDE\SAXAGLIPTIN HYDROCHLORIDE
     Indication: TYPE 2 DIABETES MELLITUS
     Dosage: 2.5/1000 MG TWO TIMES A DAY
     Route: 048

REACTIONS (3)
  - Intentional product misuse [Unknown]
  - Product dose omission [Unknown]
  - Feeling abnormal [Unknown]
